FAERS Safety Report 17898184 (Version 1)
Quarter: 2020Q2

REPORT INFORMATION
  Report Type: Spontaneous
  Country: US (occurrence: US)
  Receive Date: 20200615
  Receipt Date: 20200615
  Transmission Date: 20200714
  Serious: No
  Sender: FDA-Public Use
  Company Number: US-PERRIGO-20US006496

PATIENT
  Age: 46 Year
  Sex: Female
  Weight: 80.73 kg

DRUGS (9)
  1. TEGRETOL [Concomitant]
     Active Substance: CARBAMAZEPINE
     Indication: EPILEPSY
     Dosage: UNKNOWN, UNKNOWN
     Route: 048
     Dates: start: 1982
  2. VENLAFAXINE [Concomitant]
     Active Substance: VENLAFAXINE HYDROCHLORIDE
     Indication: MIGRAINE
     Dosage: UNKNOWN, UNKNOWN
     Route: 048
     Dates: start: 2018
  3. METFORMIN [Concomitant]
     Active Substance: METFORMIN HYDROCHLORIDE
     Indication: DIABETES MELLITUS
     Dosage: UNKNOWN, UNKNOWN
     Route: 065
     Dates: start: 1998
  4. ALBUTEROL SULFATE. [Suspect]
     Active Substance: ALBUTEROL SULFATE
     Indication: BRONCHITIS
     Dosage: 180 MCG, EVERY 4 HOURS
     Route: 055
     Dates: start: 20200413
  5. BENZONATATE. [Concomitant]
     Active Substance: BENZONATATE
     Indication: COUGH
     Dosage: UNK
     Route: 065
     Dates: start: 20200414
  6. MUCINEX [Concomitant]
     Active Substance: GUAIFENESIN
     Indication: NASAL CONGESTION
     Dosage: UNKNOWN, UNKNOWN
     Route: 065
     Dates: start: 20200413
  7. MUCINEX [Concomitant]
     Active Substance: GUAIFENESIN
     Indication: COUGH
  8. FLONASE                            /00908302/ [Concomitant]
     Active Substance: MOMETASONE FUROATE
     Indication: SINUS DISORDER
     Dosage: UNKNOWN, PRN
     Route: 045
     Dates: start: 20200413
  9. DEXBROMPHENIRAMINE MALEATE W/DEXTRO/07545001/ [Concomitant]
     Indication: COUGH
     Dosage: UNK
     Route: 065
     Dates: start: 20200415

REACTIONS (2)
  - Device delivery system issue [Recovered/Resolved]
  - Condition aggravated [Not Recovered/Not Resolved]

NARRATIVE: CASE EVENT DATE: 20200413
